FAERS Safety Report 14812596 (Version 1)
Quarter: 2018Q2

REPORT INFORMATION
  Report Type: Spontaneous
  Country: JP (occurrence: JP)
  Receive Date: 20180425
  Receipt Date: 20180425
  Transmission Date: 20180711
  Serious: Yes (Death, Hospitalization, Other)
  Sender: FDA-Public Use
  Company Number: PHHY2009JP074633

PATIENT
  Age: 53 Year
  Sex: Female
  Weight: 46 kg

DRUGS (11)
  1. LOPEMIN [Concomitant]
     Active Substance: LOPERAMIDE HYDROCHLORIDE
     Indication: PRODUCT USED FOR UNKNOWN INDICATION
     Route: 048
  2. VOLTAREN [Concomitant]
     Active Substance: DICLOFENAC SODIUM
     Indication: PALMAR-PLANTAR ERYTHRODYSAESTHESIA SYNDROME
     Route: 065
  3. XELODA [Concomitant]
     Active Substance: CAPECITABINE
     Indication: PRODUCT USED FOR UNKNOWN INDICATION
     Dosage: 2400 MG, UNK
     Route: 048
     Dates: start: 20091009, end: 20091028
  4. XELODA [Concomitant]
     Active Substance: CAPECITABINE
     Dosage: 2400 MG, BID
     Route: 048
     Dates: start: 20091225
  5. LAPATINIB [Suspect]
     Active Substance: LAPATINIB
     Indication: BREAST CANCER METASTATIC
     Dosage: 1250 MG, QD
     Route: 048
     Dates: start: 20091009, end: 20091025
  6. LAPATINIB [Suspect]
     Active Substance: LAPATINIB
     Dosage: 1000 MG, QD
     Route: 048
     Dates: start: 20091026, end: 20091224
  7. URSO [Concomitant]
     Active Substance: URSODIOL
     Indication: HEPATIC CYST
     Route: 048
  8. LOXONIN [Concomitant]
     Active Substance: LOXOPROFEN SODIUM
     Indication: PAIN
     Route: 048
  9. LAPATINIB [Suspect]
     Active Substance: LAPATINIB
     Dosage: 1250 MG, QD
     Route: 048
     Dates: start: 20091225
  10. PYDOXAL [Concomitant]
     Active Substance: PYRIDOXAL
     Indication: PALMAR-PLANTAR ERYTHRODYSAESTHESIA SYNDROME
     Route: 048
  11. GASTER [Concomitant]
     Active Substance: FAMOTIDINE
     Indication: GASTRITIS
     Route: 048

REACTIONS (8)
  - Seizure [Recovered/Resolved]
  - Jaundice [Unknown]
  - Myocardial infarction [Fatal]
  - Cardiac arrest [Fatal]
  - Dermatitis acneiform [Recovered/Resolved]
  - Diarrhoea [Recovering/Resolving]
  - Nausea [Unknown]
  - Dyskinesia [Unknown]

NARRATIVE: CASE EVENT DATE: 20091012
